FAERS Safety Report 17445849 (Version 1)
Quarter: 2020Q1

REPORT INFORMATION
  Report Type: Report from Study
  Country: RO (occurrence: RO)
  Receive Date: 20200221
  Receipt Date: 20200221
  Transmission Date: 20200409
  Serious: Yes (Other)
  Sender: FDA-Public Use
  Company Number: RO-MYLANLABS-2020M1018567

PATIENT
  Age: 74 Year
  Sex: Female
  Weight: 44 kg

DRUGS (1)
  1. TRASTUZUMAB. [Suspect]
     Active Substance: TRASTUZUMAB
     Indication: BREAST CANCER
     Dosage: 600 MILLIGRAM
     Route: 065
     Dates: start: 20190601

REACTIONS (6)
  - Insomnia [Unknown]
  - Hypertension [Unknown]
  - Asthenia [Unknown]
  - Laboratory test abnormal [Unknown]
  - Malaise [Unknown]
  - Loss of consciousness [Unknown]
